FAERS Safety Report 4618797-4 (Version None)
Quarter: 2005Q1

REPORT INFORMATION
  Report Type: 
  Country: None (occurrence: None)
  Receive Date: 20050323
  Receipt Date: 20050304
  Transmission Date: 20050727
  Serious: Yes (Hospitalization)
  Sender: FDA-Public Use
  Company Number: US_0408105000

PATIENT
  Age: 49 Year
  Sex: Female
  Weight: 97 kg

DRUGS (19)
  1. FORTEO [Suspect]
     Indication: OSTEOPOROSIS
     Dosage: 20 UG/1 DAY
     Dates: start: 20040517
  2. MS CONTIN [Concomitant]
  3. CELLECEPT (MYOCPHENOLATE MOFETIL) [Concomitant]
  4. PREDNISONE [Concomitant]
  5. FOLIC ACID [Concomitant]
  6. COUMADIN [Concomitant]
  7. VITAMIN D [Concomitant]
  8. PREVACID [Concomitant]
  9. ELAVIL [Concomitant]
  10. TOPAMAX [Concomitant]
  11. LIBRIUM [Concomitant]
  12. TENORMIN (ATENOLOL EG) [Concomitant]
  13. COPAXONE [Concomitant]
  14. KEPPRA [Concomitant]
  15. ATROVENT [Concomitant]
  16. RESTORIL [Concomitant]
  17. SINGULAIR (MONTELUKAST) [Concomitant]
  18. TIBRIUM [Concomitant]
  19. AVINZA [Concomitant]

REACTIONS (9)
  - ABDOMINAL PAIN [None]
  - BACK PAIN [None]
  - CHEST PAIN [None]
  - CONDITION AGGRAVATED [None]
  - DIARRHOEA [None]
  - DYSPNOEA [None]
  - MULTIPLE SCLEROSIS [None]
  - NAUSEA [None]
  - ROAD TRAFFIC ACCIDENT [None]
